FAERS Safety Report 8573242-1 (Version None)
Quarter: 2012Q2

REPORT INFORMATION
  Report Type: 
  Country: None (occurrence: None)
  Receive Date: 20120423
  Receipt Date: 20090714
  Transmission Date: 20120825
  Serious: Yes (Other)
  Sender: FDA-Public Use
  Company Number: PHEH2009US05121

PATIENT
  Age: 43 Year
  Sex: Female
  Weight: 49 kg

DRUGS (13)
  1. EXJADE [Suspect]
     Indication: IRON OVERLOAD
     Dosage: 1000 MG, QD, ORAL
     Route: 048
     Dates: start: 20090501, end: 20090520
  2. EXJADE [Suspect]
     Indication: SICKLE CELL ANAEMIA
     Dosage: 1000 MG, QD, ORAL
     Route: 048
     Dates: start: 20090501, end: 20090520
  3. .. [Concomitant]
  4. REGLAN	/USA/ (METOCLOPRAMIDE HYDROCHLORIDE) [Concomitant]
  5. WELLBUTRIN [Concomitant]
  6. FOLIC ACID [Concomitant]
  7. MILK OF MAGNESIA TAB [Concomitant]
  8. MULTIVITAMINS, COMBINATIONS (NO INGREDIENTS/SUBSTANCES) [Concomitant]
  9. HALDOL [Concomitant]
  10. CELEXA [Concomitant]
  11. COGENTIN [Concomitant]
  12. NORCO [Concomitant]
  13. COLACE (DOCUSATE SODIUM) [Concomitant]

REACTIONS (2)
  - HYPOACUSIS [None]
  - DIARRHOEA [None]
